FAERS Safety Report 6496464-2 (Version None)
Quarter: 2009Q4

REPORT INFORMATION
  Report Type: 
  Country: None (occurrence: None)
  Receive Date: 20091210
  Receipt Date: 20091201
  Transmission Date: 20100525
  Serious: Yes (Hospitalization)
  Sender: FDA-Public Use
  Company Number: 8041414

PATIENT
  Sex: Male

DRUGS (1)
  1. KEPPRA [Suspect]
     Dosage: (20000 MG, 40 TABLETS IN THE MORNING ORAL)
     Route: 048
     Dates: start: 20090106, end: 20090106

REACTIONS (6)
  - CARDIAC DISORDER [None]
  - DRUG DIVERSION [None]
  - INTENTIONAL OVERDOSE [None]
  - SELF-MEDICATION [None]
  - SOMNOLENCE [None]
  - SUICIDE ATTEMPT [None]
